FAERS Safety Report 5449413-X (Version None)
Quarter: 2007Q3

REPORT INFORMATION
  Report Type: 
  Country: None (occurrence: None)
  Receive Date: 20070911
  Receipt Date: 20070906
  Transmission Date: 20080115
  Serious: Yes (Other)
  Sender: FDA-Public Use
  Company Number: FR-MERCK-0611FRA00042

PATIENT
  Age: 35 Year
  Sex: Female

DRUGS (9)
  1. VYTORIN [Suspect]
     Indication: HYPERCHOLESTEROLAEMIA
     Route: 048
     Dates: end: 20061101
  2. ZOCOR [Suspect]
     Indication: HYPERCHOLESTEROLAEMIA
     Route: 048
     Dates: end: 20061101
  3. GABAPENTIN [Concomitant]
     Route: 048
  4. AMITRIPTYLINE HYDROCHLORIDE [Concomitant]
     Route: 048
  5. PREDNISONE [Concomitant]
     Indication: POLYARTERITIS NODOSA
     Route: 048
  6. ASPIRIN [Concomitant]
     Route: 048
  7. POLYETHYLENE GLYCOL 4000 [Concomitant]
     Route: 065
  8. ESOMEPRAZOLE MAGNESIUM [Concomitant]
     Route: 048
  9. ACETAMINOPHEN [Concomitant]
     Route: 065

REACTIONS (2)
  - ABORTION INDUCED [None]
  - DRUG EXPOSURE DURING PREGNANCY [None]
